FAERS Safety Report 5365174-7 (Version None)
Quarter: 2007Q2

REPORT INFORMATION
  Report Type: 
  Country: None (occurrence: None)
  Receive Date: 20070530
  Receipt Date: 20070216
  Transmission Date: 20071010
  Serious: No
  Sender: FDA-Public Use
  Company Number: 2006PV018866

PATIENT
  Age: 64 Year
  Sex: Female
  Weight: 86.1834 kg

DRUGS (15)
  1. BYETTA [Suspect]
     Indication: DIABETES MELLITUS NON-INSULIN-DEPENDENT
     Dosage: 10 MCG;BID;SC; 5 MCG; BID; SC
     Route: 058
     Dates: start: 20051101, end: 20051201
  2. BYETTA [Suspect]
     Indication: DIABETES MELLITUS NON-INSULIN-DEPENDENT
     Dosage: 10 MCG;BID;SC; 5 MCG; BID; SC
     Route: 058
     Dates: start: 20051201
  3. BYETTA [Suspect]
  4. METFORMIN HCL [Concomitant]
  5. GLIMEPIRIDE [Concomitant]
  6. ZOCOR [Concomitant]
  7. FOLTX [Concomitant]
  8. DIOVAN [Concomitant]
  9. FLAXSEED [Concomitant]
  10. CENTRUM [Concomitant]
  11. CRANACTIN [Concomitant]
  12. CINNAMON [Concomitant]
  13. VITAMIN D [Concomitant]
  14. KELP [Concomitant]
  15. ACIDOPHILUS [Concomitant]

REACTIONS (4)
  - INGROWN HAIR [None]
  - INJECTION SITE HAEMORRHAGE [None]
  - INJECTION SITE PAIN [None]
  - SKIN INFECTION [None]
